FAERS Safety Report 25982432 (Version 1)
Quarter: 2025Q4

REPORT INFORMATION
  Report Type: Report from Study
  Country: CO (occurrence: CO)
  Receive Date: 20251031
  Receipt Date: 20251031
  Transmission Date: 20260117
  Serious: Yes (Other)
  Sender: ABBVIE
  Company Number: CO-ABBVIE-6521698

PATIENT
  Age: 50 Year
  Sex: Male
  Weight: 78 kg

DRUGS (2)
  1. SKYRIZI [Suspect]
     Active Substance: RISANKIZUMAB-RZAA
     Indication: Psoriasis
     Dosage: DOSE FORM- PRE-FILLED SYRINGE, FORM STRENGTH - 150 MG
     Route: 058
     Dates: start: 20230301
  2. PREGABALIN [Concomitant]
     Active Substance: PREGABALIN
     Indication: Muscle spasms
     Dosage: START DATE - 10 YEARS
     Route: 048

REACTIONS (5)
  - Suicidal ideation [Recovered/Resolved]
  - Blood cholesterol abnormal [Recovering/Resolving]
  - Vitamin D deficiency [Recovering/Resolving]
  - Diarrhoea [Recovered/Resolved]
  - Immunodeficiency [Recovered/Resolved]

NARRATIVE: CASE EVENT DATE: 20240101
